FAERS Safety Report 23509305 (Version 8)
Quarter: 2024Q2

REPORT INFORMATION
  Report Type: Spontaneous
  Country: CA (occurrence: CA)
  Receive Date: 20240210
  Receipt Date: 20240605
  Transmission Date: 20240716
  Serious: Yes (Other)
  Sender: FDA-Public Use
  Company Number: CA-CELLTRION INC.-2024CA003076

PATIENT

DRUGS (9)
  1. INFLECTRA [Suspect]
     Active Substance: INFLIXIMAB-DYYB
     Indication: Crohn^s disease
     Dosage: 1100 MG, EVERY 6 WEEKS
     Route: 042
     Dates: start: 20200714
  2. INFLECTRA [Suspect]
     Active Substance: INFLIXIMAB-DYYB
     Dosage: 1100 MG, EVERY 6 WEEKS
     Route: 042
     Dates: start: 20240109
  3. INFLECTRA [Suspect]
     Active Substance: INFLIXIMAB-DYYB
     Dosage: 1100 MG, EVERY 6 WEEKS
     Route: 042
     Dates: start: 20240228
  4. INFLECTRA [Suspect]
     Active Substance: INFLIXIMAB-DYYB
     Dosage: 1100 MG, EVERY 6 WEEKS
     Route: 042
     Dates: start: 20240410
  5. INFLECTRA [Suspect]
     Active Substance: INFLIXIMAB-DYYB
     Dosage: 2000 MG, EVERY 4 WEEKS
     Route: 042
     Dates: start: 20240528
  6. AMLODIPINE [Concomitant]
     Active Substance: AMLODIPINE BESYLATE
     Indication: Hypertension
     Dosage: 1 DF, DOSAGE INFO UNK
     Route: 065
  7. ACETAMINOPHEN\OXYCODONE HYDROCHLORIDE [Concomitant]
     Active Substance: ACETAMINOPHEN\OXYCODONE HYDROCHLORIDE
     Indication: Phantom limb syndrome
     Dosage: 1 DF, DOSAGE INFO UNK
     Route: 065
  8. TAMSULOSIN [Concomitant]
     Active Substance: TAMSULOSIN
     Indication: Prostatic disorder
     Dosage: 1 DF, DOSAGE INFO UNK
     Route: 065
  9. ZOPICLONE [Concomitant]
     Active Substance: ZOPICLONE
     Indication: Sleep disorder
     Dosage: 1 DF, DOSAGE INFO UNK
     Route: 065

REACTIONS (4)
  - Nephrolithiasis [Recovering/Resolving]
  - Drug level decreased [Unknown]
  - Off label use [Unknown]
  - Off label use [Unknown]
